FAERS Safety Report 15325473 (Version 1)
Quarter: 2018Q3

REPORT INFORMATION
  Report Type: Spontaneous
  Country: US (occurrence: US)
  Receive Date: 20180822
  Receipt Date: 20180822
  Transmission Date: 20181010
  Serious: No
  Sender: FDA-Public Use
  Company Number: None

PATIENT
  Age: 2 Year
  Sex: Female

DRUGS (3)
  1. BALGUTI KESARIA [Suspect]
     Active Substance: HERBALS
     Indication: TEETHING
  2. LEAD (UNDECLARED INGREDIENT) [Suspect]
     Active Substance: LEAD
  3. BALGUTI KESARIA [Suspect]
     Active Substance: HERBALS
     Indication: COUGH
     Route: 048
     Dates: start: 20160801, end: 20180815

REACTIONS (1)
  - Blood lead increased [None]

NARRATIVE: CASE EVENT DATE: 20180820
